FAERS Safety Report 5354904-6 (Version None)
Quarter: 2007Q2

REPORT INFORMATION
  Report Type: 
  Country: None (occurrence: None)
  Receive Date: 20070611
  Receipt Date: 20070529
  Transmission Date: 20071010
  Serious: Yes (Death, Other)
  Sender: FDA-Public Use
  Company Number: 16665

PATIENT
  Age: 54 Year
  Sex: Female

DRUGS (4)
  1. METHOTREXATE [Suspect]
     Indication: LYMPHOMA
     Dosage: 3.5 G/M2 PER_CYCLE UNK
  2. METHOTREXATE [Suspect]
     Indication: LYMPHOMA
  3. VINCRISTINE [Suspect]
     Indication: LYMPHOMA
  4. PROCARBAZINE [Suspect]
     Indication: LYMPHOMA

REACTIONS (2)
  - LEUKOENCEPHALOPATHY [None]
  - NEUROTOXICITY [None]
